FAERS Safety Report 17096819 (Version 2)
Quarter: 2019Q4

REPORT INFORMATION
  Report Type: Spontaneous
  Country: IT (occurrence: IT)
  Receive Date: 20191202
  Receipt Date: 20191211
  Transmission Date: 20200122
  Serious: Yes (Other)
  Sender: FDA-Public Use
  Company Number: IT-TEVA-2019-IT-1144244

PATIENT
  Age: 91 Year
  Sex: Female

DRUGS (1)
  1. RISPERIDONE RATIOPHARM 1 MG COMPRESSE RIVESTITE CON FILM [Suspect]
     Active Substance: RISPERIDONE
     Indication: PSYCHOMOTOR HYPERACTIVITY
     Dosage: 1 MG PER DAY
     Route: 048
     Dates: start: 20191026, end: 20191102

REACTIONS (2)
  - Off label use [Recovered/Resolved]
  - Epilepsy [Recovered/Resolved]

NARRATIVE: CASE EVENT DATE: 20191102
